FAERS Safety Report 10159740 (Version 1)
Quarter: 2014Q2

REPORT INFORMATION
  Report Type: Spontaneous
  Country: US (occurrence: US)
  Receive Date: 20140508
  Receipt Date: 20140508
  Transmission Date: 20141212
  Serious: No
  Sender: FDA-Public Use
  Company Number: US-GLAXOSMITHKLINE-A1024413A

PATIENT
  Age: 61 Year
  Sex: Female
  Weight: 63.6 kg

DRUGS (3)
  1. TYKERB [Suspect]
     Indication: BREAST CANCER
     Dosage: 1500MG IN THE MORNING
     Route: 048
     Dates: start: 20120410
  2. LOVENOX [Concomitant]
  3. PRILOSEC [Concomitant]

REACTIONS (1)
  - Diarrhoea [Not Recovered/Not Resolved]
